FAERS Safety Report 8928911 (Version 2)
Quarter: 2013Q1

REPORT INFORMATION
  Report Type: Spontaneous
  Country: FR (occurrence: FR)
  Receive Date: 20121128
  Receipt Date: 20130102
  Transmission Date: 20140127
  Serious: Yes (Death, Hospitalization)
  Sender: FDA-Public Use
  Company Number: FR-BRISTOL-MYERS SQUIBB COMPANY-17141250

PATIENT
  Sex: Female

DRUGS (2)
  1. TAXOL [Suspect]
     Indication: HEPATIC CANCER
  2. AVASTIN [Suspect]
     Indication: HEPATIC CANCER

REACTIONS (3)
  - Thrombotic thrombocytopenic purpura [Fatal]
  - Confusional state [Unknown]
  - Haemolytic anaemia [Unknown]
